FAERS Safety Report 9129688 (Version 1)
Quarter: 2013Q1

REPORT INFORMATION
  Report Type: Spontaneous
  Country: FR (occurrence: FR)
  Receive Date: 20130228
  Receipt Date: 20130228
  Transmission Date: 20140127
  Serious: Yes (Hospitalization)
  Sender: FDA-Public Use
  Company Number: FR-B.I. PHARMACEUTICALS,INC./RIDGEFIELD-2013-FF-00558FF

PATIENT
  Age: 90 Year
  Sex: Female

DRUGS (7)
  1. PRADAXA [Suspect]
     Indication: ATRIAL FIBRILLATION
     Dosage: 220 MG
     Route: 048
     Dates: start: 20121217, end: 20130117
  2. HEMIGOXINE NATIVELLE [Concomitant]
  3. VALSARTAN [Concomitant]
  4. HYDROCHLOROTHIAZIDE [Concomitant]
  5. ALPRAZOLAM [Concomitant]
  6. LERCAN [Concomitant]
     Route: 048
  7. TRANSIPEG [Concomitant]

REACTIONS (1)
  - Transient ischaemic attack [Recovered/Resolved]
